FAERS Safety Report 9917023 (Version 2)
Quarter: 2014Q2

REPORT INFORMATION
  Report Type: Spontaneous
  Country: US (occurrence: US)
  Receive Date: 20140221
  Receipt Date: 20140415
  Transmission Date: 20141212
  Serious: Yes (Other)
  Sender: FDA-Public Use
  Company Number: US-GLAXOSMITHKLINE-A1061344A

PATIENT
  Age: 74 Year
  Sex: Female

DRUGS (6)
  1. ASPIRIN [Concomitant]
  2. LOVAZA [Suspect]
     Indication: BLOOD TRIGLYCERIDES INCREASED
     Dosage: 1CAP TWICE PER DAY
     Route: 048
  3. LIPITOR [Concomitant]
  4. METOPROLOL [Concomitant]
  5. TRIBENZOR [Concomitant]
  6. VITAMINS [Concomitant]

REACTIONS (8)
  - Cerebrovascular accident [Unknown]
  - Asthenia [Unknown]
  - Dizziness [Unknown]
  - Drug administration error [Unknown]
  - Hypoaesthesia [Unknown]
  - Hypoaesthesia [Recovered/Resolved]
  - Therapeutic response changed [Unknown]
  - Feeling abnormal [Unknown]
